FAERS Safety Report 7991950-8 (Version None)
Quarter: 2011Q4

REPORT INFORMATION
  Report Type: 
  Country: None (occurrence: None)
  Receive Date: 20111219
  Receipt Date: 20110511
  Transmission Date: 20120403
  Serious: No
  Sender: FDA-Public Use
  Company Number: US-ASTRAZENECA-2011SE28035

PATIENT
  Age: 41 Year
  Sex: Male
  Weight: 90.7 kg

DRUGS (6)
  1. METFORMIN HCL [Concomitant]
  2. ANAFLEX [Concomitant]
  3. VICODIN [Concomitant]
  4. BLOOD PRESSURE MEDICATION [Concomitant]
  5. CRESTOR [Suspect]
     Route: 048
     Dates: start: 20110427
  6. ASPIRIN [Concomitant]

REACTIONS (1)
  - POLLAKIURIA [None]
